FAERS Safety Report 21743960 (Version 1)
Quarter: 2022Q4

REPORT INFORMATION
  Report Type: Spontaneous
  Country: US (occurrence: US)
  Receive Date: 20221217
  Receipt Date: 20221217
  Transmission Date: 20230112
  Serious: Yes (Life-Threatening, Hospitalization, Other)
  Sender: FDA-Public Use
  Company Number: US-drreddys-SPO/USA/22/0158332

PATIENT
  Age: 37 Year
  Sex: Male

DRUGS (2)
  1. TACROLIMUS [Suspect]
     Active Substance: TACROLIMUS
     Indication: Immunosuppressant drug therapy
  2. AZATHIOPRINE [Suspect]
     Active Substance: AZATHIOPRINE
     Indication: Immunosuppressant drug therapy

REACTIONS (5)
  - Extravasation [Recovered/Resolved]
  - Arterial rupture [Recovered/Resolved]
  - Haematoma muscle [Recovering/Resolving]
  - Vasculitis [Unknown]
  - Cerebral infarction [Recovering/Resolving]
